FAERS Safety Report 13234914 (Version 1)
Quarter: 2017Q1

REPORT INFORMATION
  Report Type: Spontaneous
  Country: BG (occurrence: BG)
  Receive Date: 20170215
  Receipt Date: 20170215
  Transmission Date: 20170428
  Serious: Yes (Hospitalization)
  Sender: FDA-Public Use
  Company Number: BG-ELI_LILLY_AND_COMPANY-BG201702001706

PATIENT
  Age: 74 Year
  Sex: Male

DRUGS (2)
  1. PACLITAXEL. [Suspect]
     Active Substance: PACLITAXEL
     Indication: GASTRIC CANCER
     Dosage: UNK, OTHER
     Route: 065
     Dates: start: 20160628, end: 20170105
  2. RAMUCIRUMAB [Suspect]
     Active Substance: RAMUCIRUMAB
     Indication: GASTRIC CANCER
     Dosage: UNK, CYCLICAL
     Route: 042
     Dates: start: 20160628, end: 20170105

REACTIONS (8)
  - Hypertension [Unknown]
  - Neutropenia [Unknown]
  - Hypoalbuminaemia [Unknown]
  - Fatigue [Unknown]
  - Peripheral swelling [Unknown]
  - Leukopenia [Unknown]
  - Thrombocytopenia [Unknown]
  - Cardiac failure chronic [Unknown]
